FAERS Safety Report 5229649-3 (Version None)
Quarter: 2007Q1

REPORT INFORMATION
  Report Type: 
  Country: None (occurrence: None)
  Receive Date: 20070206
  Receipt Date: 20070126
  Transmission Date: 20070707
  Serious: Yes (Other)
  Sender: FDA-Public Use
  Company Number: PHBS2007JP01854

PATIENT
  Age: 74 Year
  Sex: Male

DRUGS (1)
  1. DIOVAN [Suspect]
     Indication: HYPERTENSION
     Route: 048
     Dates: end: 20070101

REACTIONS (3)
  - BLOOD BILIRUBIN INCREASED [None]
  - LIVER DISORDER [None]
  - PROTHROMBIN TIME PROLONGED [None]
